FAERS Safety Report 25749466 (Version 1)
Quarter: 2025Q3

REPORT INFORMATION
  Report Type: Spontaneous
  Country: SA (occurrence: SA)
  Receive Date: 20250902
  Receipt Date: 20250902
  Transmission Date: 20251021
  Serious: Yes (Other)
  Sender: STRIDES
  Company Number: SA-STRIDES ARCOLAB LIMITED-2025SP010981

PATIENT
  Age: 24 Year
  Sex: Female

DRUGS (4)
  1. COLCHICINE [Suspect]
     Active Substance: COLCHICINE
     Indication: Neutrophilic dermatosis
     Route: 065
  2. COLCHICINE [Suspect]
     Active Substance: COLCHICINE
     Indication: Urticaria
  3. DAPSONE [Suspect]
     Active Substance: DAPSONE
     Indication: Neutrophilic dermatosis
     Route: 065
  4. DAPSONE [Suspect]
     Active Substance: DAPSONE
     Indication: Urticaria

REACTIONS (3)
  - Condition aggravated [Recovered/Resolved]
  - Multiple-drug resistance [Unknown]
  - Off label use [Unknown]
